FAERS Safety Report 6851731-5 (Version None)
Quarter: 2010Q3

REPORT INFORMATION
  Report Type: 
  Country: None (occurrence: None)
  Receive Date: 20100717
  Receipt Date: 20071026
  Transmission Date: 20110219
  Serious: No
  Sender: FDA-Public Use
  Company Number: US-PFIZER INC-2007092530

PATIENT
  Sex: Female
  Weight: 59.09 kg

DRUGS (4)
  1. CHANTIX [Suspect]
     Indication: SMOKING CESSATION THERAPY
     Dates: start: 20070901
  2. PREMPRO [Concomitant]
  3. LIPITOR [Concomitant]
  4. ZETIA [Concomitant]

REACTIONS (2)
  - NAUSEA [None]
  - WEIGHT INCREASED [None]
